FAERS Safety Report 9712981 (Version 2)
Quarter: 2013Q4

REPORT INFORMATION
  Report Type: Spontaneous
  Country: US (occurrence: US)
  Receive Date: 20131126
  Receipt Date: 20131126
  Transmission Date: 20140711
  Serious: No
  Sender: FDA-Public Use
  Company Number: US-BRISTOL-MYERS SQUIBB COMPANY-18953398

PATIENT
  Age: 60 Year
  Sex: Male
  Weight: 96.5 kg

DRUGS (5)
  1. BYDUREON [Suspect]
     Indication: TYPE 2 DIABETES MELLITUS
     Route: 058
     Dates: start: 20130417, end: 20130529
  2. PREVACID [Concomitant]
  3. SYNTHROID [Concomitant]
  4. VYTORIN [Concomitant]
     Dosage: FORMULATION-VYTORIN 10/30
  5. ASPIRIN [Concomitant]

REACTIONS (7)
  - Lethargy [Unknown]
  - Dyspepsia [Unknown]
  - Constipation [Unknown]
  - Abdominal distension [Recovered/Resolved]
  - Decreased appetite [Unknown]
  - Weight increased [Unknown]
  - Feeling abnormal [Unknown]
